FAERS Safety Report 17072756 (Version 1)
Quarter: 2019Q4

REPORT INFORMATION
  Report Type: Spontaneous
  Country: FR (occurrence: FR)
  Receive Date: 20191125
  Receipt Date: 20191125
  Transmission Date: 20200122
  Serious: Yes (Death)
  Sender: FDA-Public Use
  Company Number: FR-ALLERGAN-1947742US

PATIENT
  Sex: Female
  Weight: 29.5 kg

DRUGS (8)
  1. ENOXAPARINE SODIQUE ((MAMMIFERE/PORC/MUQUEUSE INTESTINALE)) [Concomitant]
     Active Substance: ENOXAPARIN SODIUM
     Indication: PRODUCT USED FOR UNKNOWN INDICATION
  2. LOXAPAC [Suspect]
     Active Substance: LOXAPINE
     Indication: POISONING DELIBERATE
     Dosage: 1500 MG, 1 BOTTLE OF 60 ML AT 25 MG/ML
     Route: 048
     Dates: start: 20191012, end: 20191012
  3. VENLAFAXINE [Concomitant]
     Active Substance: VENLAFAXINE HYDROCHLORIDE
     Indication: DEPRESSION
     Dosage: 75 MG, UNKNOWN
     Route: 048
  4. ESCITALOPRAM OXALATE - BP [Suspect]
     Active Substance: ESCITALOPRAM OXALATE
     Indication: POISONING DELIBERATE
     Dosage: OVERDOSE: 1 BOTTLE OF 20 ML AT 20 MG/M
     Route: 048
     Dates: start: 20191012, end: 20191012
  5. DOLIPRANE [Suspect]
     Active Substance: ACETAMINOPHEN
     Indication: POISONING DELIBERATE
     Dosage: 15 G, 30 GELULES AT 500 MG
     Route: 048
     Dates: start: 20191012, end: 20191012
  6. PAROXETINE. [Suspect]
     Active Substance: PAROXETINE
     Indication: POISONING DELIBERATE
     Dosage: 420 MG, 21 CP AT 20 MG
     Route: 048
     Dates: start: 20191012, end: 20191012
  7. ESOMEPRAZOLE. [Concomitant]
     Active Substance: ESOMEPRAZOLE MAGNESIUM
     Indication: PRODUCT USED FOR UNKNOWN INDICATION
  8. OXAZEPAM. [Concomitant]
     Active Substance: OXAZEPAM
     Indication: DEPRESSION
     Route: 048

REACTIONS (2)
  - Poisoning deliberate [Fatal]
  - Intentional overdose [Fatal]

NARRATIVE: CASE EVENT DATE: 20191012
